FAERS Safety Report 8478556-1 (Version None)
Quarter: 2012Q2

REPORT INFORMATION
  Report Type: 
  Country: None (occurrence: None)
  Receive Date: 20120402
  Receipt Date: 20111013
  Transmission Date: 20120825
  Serious: Yes (Disabling, Other)
  Sender: FDA-Public Use
  Company Number: 289276USA

PATIENT
  Age: 77 Year
  Sex: Female

DRUGS (2)
  1. ALENDRONATE SODIUM [Suspect]
     Dates: start: 20040101
  2. ALENDRONATE SODIUM [Suspect]

REACTIONS (6)
  - FEMUR FRACTURE [None]
  - STRESS FRACTURE [None]
  - ACTIVITIES OF DAILY LIVING IMPAIRED [None]
  - PAIN IN EXTREMITY [None]
  - LOW TURNOVER OSTEOPATHY [None]
  - GAIT DISTURBANCE [None]
